FAERS Safety Report 6078539-5 (Version None)
Quarter: 2009Q1

REPORT INFORMATION
  Report Type: 
  Country: None (occurrence: None)
  Receive Date: 20090212
  Receipt Date: 20090212
  Transmission Date: 20090719
  Serious: Yes (Other)
  Sender: FDA-Public Use
  Company Number: None

PATIENT
  Age: 56 Year
  Sex: Female
  Weight: 86.1834 kg

DRUGS (2)
  1. LIPITOR [Suspect]
     Indication: BLOOD CHOLESTEROL INCREASED
     Dosage: 20 MG ONCE PER DAY PO
     Route: 048
     Dates: start: 20030501, end: 20040901
  2. LIPITOR [Suspect]
     Indication: BLOOD CHOLESTEROL INCREASED
     Dosage: 40 MG ONCE PER DAY PO
     Route: 048
     Dates: start: 20040901, end: 20070901

REACTIONS (7)
  - ARTHRALGIA [None]
  - CONTUSION [None]
  - MEMORY IMPAIRMENT [None]
  - MYALGIA [None]
  - NIGHTMARE [None]
  - PAIN [None]
  - YELLOW SKIN [None]
